FAERS Safety Report 18704722 (Version 3)
Quarter: 2021Q1

REPORT INFORMATION
  Report Type: Report from Study
  Country: None (occurrence: AE)
  Receive Date: 20210106
  Receipt Date: 20210122
  Transmission Date: 20210419
  Serious: Yes (Hospitalization)
  Sender: FDA-Public Use
  Company Number: AE-ABBVIE-21K-166-3715357-00

PATIENT
  Age: 81 Year
  Sex: Male
  Weight: 89 kg

DRUGS (6)
  1. DUODOPA [Suspect]
     Active Substance: CARBIDOPA\LEVODOPA
     Dosage: AM DOSE?20ML CONT DOSE 7.5ML EXTRA DOSE?1ML
     Route: 050
     Dates: start: 20210118
  2. DUODOPA [Suspect]
     Active Substance: CARBIDOPA\LEVODOPA
     Dosage: AMDOSE?20ML CONT.DOSE?7.5ML EXTRA DOSE?1ML
     Route: 050
     Dates: start: 20201205, end: 20210103
  3. MADOPAR [Concomitant]
     Active Substance: BENSERAZIDE HYDROCHLORIDE\LEVODOPA
     Indication: PARKINSON^S DISEASE
     Route: 048
     Dates: start: 20200315
  4. ROTIGOTINE [Concomitant]
     Active Substance: ROTIGOTINE
     Indication: PARKINSON^S DISEASE
     Dosage: PATCH
     Dates: start: 20210110
  5. DUODOPA [Suspect]
     Active Substance: CARBIDOPA\LEVODOPA
     Indication: PARKINSON^S DISEASE
     Dosage: AMDOSE?20ML CONT.DOSE?7.5ML EXTRA DOSE?1ML, ONCE A DAY FOR 16 HOURS.
     Route: 050
     Dates: start: 20201205, end: 20201205
  6. SYNDOPA [Concomitant]
     Active Substance: LEVODOPA
     Indication: PARKINSON^S DISEASE
     Dosage: SYNDOPA CR
     Route: 048
     Dates: start: 20200424

REACTIONS (2)
  - Urinary tract infection [Recovered/Resolved]
  - Device dislocation [Recovered/Resolved]

NARRATIVE: CASE EVENT DATE: 20201224
